FAERS Safety Report 7248599-4 (Version None)
Quarter: 2011Q1

REPORT INFORMATION
  Report Type: 
  Country: None (occurrence: None)
  Receive Date: 20110128
  Receipt Date: 20110103
  Transmission Date: 20110831
  Serious: Yes (Death)
  Sender: FDA-Public Use
  Company Number: US-BAYER-2011-001559

PATIENT
  Age: 53 Year
  Sex: Female

DRUGS (4)
  1. METHYLPHENIDATE [Suspect]
     Route: 048
  2. CLONAZEPAM [Suspect]
     Route: 048
  3. DOXEPIN HCL [Suspect]
     Route: 048
  4. NAPROXEN SODIUM [Suspect]
     Route: 048

REACTIONS (1)
  - TOXICITY TO VARIOUS AGENTS [None]
